FAERS Safety Report 20336867 (Version 1)
Quarter: 2022Q1

REPORT INFORMATION
  Report Type: Spontaneous
  Country: ZA (occurrence: ZA)
  Receive Date: 20220114
  Receipt Date: 20220114
  Transmission Date: 20220424
  Serious: Yes (Hospitalization, Other)
  Sender: FDA-Public Use
  Company Number: ZA-LUPIN PHARMACEUTICALS INC.-2022-00034

PATIENT
  Age: 66 Year
  Sex: Female

DRUGS (9)
  1. HYDROCHLOROTHIAZIDE\LISINOPRIL [Suspect]
     Active Substance: HYDROCHLOROTHIAZIDE\LISINOPRIL
     Indication: Hypertension
     Dosage: 1 DOSAGE FORM, UNK
     Route: 048
     Dates: end: 202111
  2. LEVOTHYROXINE [Suspect]
     Active Substance: LEVOTHYROXINE
     Indication: Thyroid disorder
     Dosage: 50 MICROGRAM, UNK-ELTROXIN NEW FORMULATION
     Route: 048
  3. LEVOTHYROXINE [Suspect]
     Active Substance: LEVOTHYROXINE
     Dosage: 50 MICROGRAM, UNK-ELTROXIN NEW FORMULATION
     Route: 048
  4. MELOXICAM [Suspect]
     Active Substance: MELOXICAM
     Indication: Inflammation
     Dosage: 15 MILLIGRAM, UNK-COXFLAM
     Route: 048
  5. HYDROCHLOROTHIAZIDE\TELMISARTAN [Suspect]
     Active Substance: HYDROCHLOROTHIAZIDE\TELMISARTAN
     Indication: Hypertension
     Dosage: 80/12.5
     Route: 048
     Dates: start: 202112
  6. ATORVASTATIN [Suspect]
     Active Substance: ATORVASTATIN
     Indication: Blood cholesterol abnormal
     Dosage: 20 MILLIGRAM, UNK
     Route: 048
  7. OMEPRAZOLE [Suspect]
     Active Substance: OMEPRAZOLE
     Indication: Ulcer
     Dosage: 20 MILLIGRAM, UNK
     Route: 065
  8. ASPIRIN [Suspect]
     Active Substance: ASPIRIN
     Indication: Anticoagulant therapy
     Dosage: 100 MILLIGRAM, UNK
     Route: 048
  9. CLOPIDOGREL BISULFATE [Suspect]
     Active Substance: CLOPIDOGREL BISULFATE
     Indication: Anticoagulant therapy
     Dosage: 75 MILLIGRAM, UNK
     Route: 048

REACTIONS (1)
  - Adverse event [Unknown]
